FAERS Safety Report 6887784-8 (Version None)
Quarter: 2010Q3

REPORT INFORMATION
  Report Type: 
  Country: None (occurrence: None)
  Receive Date: 20100730
  Receipt Date: 20100720
  Transmission Date: 20110219
  Serious: Yes (Other)
  Sender: FDA-Public Use
  Company Number: JP-PFIZER INC-2010090622

PATIENT
  Age: 72 Year
  Sex: Female

DRUGS (2)
  1. LYRICA [Suspect]
     Dosage: 150 MG, 1X/DAY
     Route: 048
  2. VALTREX [Concomitant]
     Indication: HERPES ZOSTER

REACTIONS (4)
  - ASTHENIA [None]
  - DYSARTHRIA [None]
  - GRIP STRENGTH DECREASED [None]
  - JOINT STIFFNESS [None]
